FAERS Safety Report 8305552-7 (Version None)
Quarter: 2012Q2

REPORT INFORMATION
  Report Type: 
  Country: None (occurrence: None)
  Receive Date: 20120423
  Receipt Date: 20120418
  Transmission Date: 20120825
  Serious: Yes (Hospitalization, Other)
  Sender: FDA-Public Use
  Company Number: US-MERCK-1008USA04174

PATIENT
  Age: 48 Year
  Sex: Female

DRUGS (5)
  1. BONIVA [Suspect]
     Indication: OSTEOPOROSIS
     Route: 048
     Dates: start: 20071114, end: 20080114
  2. FOSAMAX [Suspect]
     Indication: OSTEOPOROSIS
     Route: 048
     Dates: start: 20071101, end: 20080401
  3. ALENDRONATE SODIUM [Suspect]
     Indication: OSTEOPOROSIS
     Route: 048
     Dates: start: 20080301
  4. BONIVA [Suspect]
     Route: 048
     Dates: start: 20100714, end: 20100715
  5. ACTONEL [Suspect]
     Indication: OSTEOPOROSIS
     Route: 048
     Dates: start: 20100101

REACTIONS (29)
  - LYMPHORRHOEA [None]
  - BONE LOSS [None]
  - ARTERIAL STENOSIS [None]
  - PERIPHERAL VASCULAR DISORDER [None]
  - DENTAL CARIES [None]
  - TOOTH DISORDER [None]
  - EXOSTOSIS [None]
  - THROMBOSIS [None]
  - HAEMORRHAGIC STROKE [None]
  - VERTIGO [None]
  - FIBROSIS [None]
  - INTERMITTENT CLAUDICATION [None]
  - ANGIOPATHY [None]
  - ARTHRALGIA [None]
  - OSTEOARTHRITIS [None]
  - DENTAL NECROSIS [None]
  - CEREBROVASCULAR DISORDER [None]
  - PERIPHERAL EMBOLISM [None]
  - CHEST PAIN [None]
  - OSTEONECROSIS OF JAW [None]
  - CEREBELLAR HAEMATOMA [None]
  - DEVICE MALFUNCTION [None]
  - POST PROCEDURAL INFECTION [None]
  - IMPAIRED HEALING [None]
  - HYPERGLYCAEMIA [None]
  - ADVERSE DRUG REACTION [None]
  - PERIODONTITIS [None]
  - ROTATOR CUFF SYNDROME [None]
  - CHRONIC OBSTRUCTIVE PULMONARY DISEASE [None]
